FAERS Safety Report 9821441 (Version 1)
Quarter: 2014Q1

REPORT INFORMATION
  Report Type: Spontaneous
  Country: US (occurrence: None)
  Receive Date: 20140115
  Receipt Date: 20140115
  Transmission Date: 20141002
  Serious: Yes (Other)
  Sender: FDA-Public Use
  Company Number: None

PATIENT
  Sex: Male

DRUGS (1)
  1. SUBOXONE [Suspect]
     Dosage: SUBOXONE 8/2, SWITCH TO SUBOXONE FILM
     Route: 060
     Dates: start: 20130802

REACTIONS (4)
  - Product physical issue [None]
  - Incorrect dose administered [None]
  - Drug ineffective [None]
  - Dysphagia [None]
